FAERS Safety Report 8096090-8 (Version None)
Quarter: 2012Q1

REPORT INFORMATION
  Report Type: 
  Country: None (occurrence: None)
  Receive Date: 20120131
  Receipt Date: 20120125
  Transmission Date: 20120608
  Serious: Yes (Hospitalization)
  Sender: FDA-Public Use
  Company Number: US-GLAXOSMITHKLINE-A0862122A

PATIENT
  Age: 57 Year
  Sex: Male
  Weight: 83.6 kg

DRUGS (7)
  1. AMARYL [Concomitant]
  2. VIAGRA [Concomitant]
  3. AVANDAMET [Suspect]
     Indication: DIABETES MELLITUS
     Dosage: 1TAB TWICE PER DAY
     Route: 048
     Dates: start: 20051001, end: 20060901
  4. OMACOR [Concomitant]
  5. METFORMIN HCL [Concomitant]
  6. LIPITOR [Concomitant]
  7. AVANDIA [Suspect]
     Indication: DIABETES MELLITUS
     Dosage: 2MG TWICE PER DAY
     Route: 048
     Dates: end: 20080205

REACTIONS (5)
  - ATRIAL FIBRILLATION [None]
  - CARDIAC DISORDER [None]
  - MYOCARDIAL INFARCTION [None]
  - VENTRICULAR TACHYCARDIA [None]
  - CORONARY ARTERY DISEASE [None]
